FAERS Safety Report 6029216-8 (Version None)
Quarter: 2009Q1

REPORT INFORMATION
  Report Type: 
  Country: None (occurrence: None)
  Receive Date: 20090106
  Receipt Date: 20081217
  Transmission Date: 20090719
  Serious: No
  Sender: FDA-Public Use
  Company Number: US-B.I. PHARMACEUTICALS,INC./RIDGEFIELD-2008-BP-09302BP

PATIENT
  Sex: Female

DRUGS (3)
  1. MIRAPEX [Suspect]
     Indication: RESTLESS LEGS SYNDROME
     Dosage: 4.5MG
     Route: 048
     Dates: start: 20050101
  2. CYMBALTA [Concomitant]
     Indication: DEPRESSION
     Dosage: 60MG
     Route: 048
     Dates: start: 20050101
  3. ANTI-INFLAMMATORY (UNSPECIFIED) [Concomitant]
     Indication: ARTHRALGIA
     Route: 048

REACTIONS (2)
  - COMPULSIVE SHOPPING [None]
  - GAMBLING [None]
